FAERS Safety Report 6470880-7 (Version None)
Quarter: 2009Q4

REPORT INFORMATION
  Report Type: 
  Country: None (occurrence: None)
  Receive Date: 20091203
  Receipt Date: 20080103
  Transmission Date: 20100525
  Serious: Yes (Hospitalization)
  Sender: FDA-Public Use
  Company Number: US-ELI_LILLY_AND_COMPANY-US200801000479

PATIENT
  Sex: Male

DRUGS (1)
  1. FORTEO [Suspect]
     Dates: start: 20071109, end: 20071203

REACTIONS (1)
  - CEREBROVASCULAR ACCIDENT [None]
